FAERS Safety Report 6925139-8 (Version None)
Quarter: 2010Q3

REPORT INFORMATION
  Report Type: 
  Country: None (occurrence: None)
  Receive Date: 20100810
  Receipt Date: 20100727
  Transmission Date: 20110219
  Serious: Yes (Other)
  Sender: FDA-Public Use
  Company Number: 016364

PATIENT
  Sex: Male

DRUGS (2)
  1. LACOSAMIDE [Suspect]
     Indication: EPILEPSY
     Dosage: 100 MG BID
  2. IBUPROFEN [Concomitant]

REACTIONS (2)
  - NEOPLASM [None]
  - THROMBOCYTOPENIA [None]
